FAERS Safety Report 5214906-7 (Version None)
Quarter: 2007Q1

REPORT INFORMATION
  Report Type: 
  Country: None (occurrence: None)
  Receive Date: 20061108
  Receipt Date: 20060504
  Transmission Date: 20070707
  Serious: Yes (Other)
  Sender: FDA-Public Use
  Company Number: PHEH2006US05878

PATIENT
  Sex: Female

DRUGS (3)
  1. ESTRADERM [Suspect]
  2. PREMARIN [Suspect]
  3. PROVERA [Suspect]

REACTIONS (2)
  - BREAST CANCER [None]
  - MASTECTOMY [None]
